FAERS Safety Report 12651748 (Version 3)
Quarter: 2016Q4

REPORT INFORMATION
  Report Type: Spontaneous
  Country: US (occurrence: US)
  Receive Date: 20160815
  Receipt Date: 20161104
  Transmission Date: 20170207
  Serious: Yes (Other)
  Sender: FDA-Public Use
  Company Number: US-PFIZER INC-2016383803

PATIENT
  Age: 6 Decade
  Sex: Male

DRUGS (2)
  1. SIMVASTATIN. [Concomitant]
     Active Substance: SIMVASTATIN
     Indication: HYPERLIPIDAEMIA
     Dosage: 40 MG, 1X/DAY
     Dates: start: 20110723
  2. CHANTIX [Suspect]
     Active Substance: VARENICLINE TARTRATE
     Indication: SMOKING CESSATION THERAPY
     Dosage: 40 MG, 1X/DAY
     Route: 048
     Dates: start: 20160604, end: 20160624

REACTIONS (8)
  - Ocular icterus [Recovered/Resolved]
  - Hepatitis [Unknown]
  - Hepatic enzyme increased [Unknown]
  - Transaminases increased [Recovered/Resolved]
  - Chromaturia [Unknown]
  - Influenza like illness [Unknown]
  - Pruritus [Recovered/Resolved]
  - Jaundice [Unknown]

NARRATIVE: CASE EVENT DATE: 20160623
